FAERS Safety Report 8549151-0 (Version None)
Quarter: 2012Q3

REPORT INFORMATION
  Report Type: 
  Country: None (occurrence: None)
  Receive Date: 20120730
  Receipt Date: 20120724
  Transmission Date: 20120928
  Serious: Yes (Other)
  Sender: FDA-Public Use
  Company Number: JP-PFIZER INC-2012177920

PATIENT

DRUGS (1)
  1. SILDENAFIL CITRATE [Suspect]
     Dosage: 40 MG/DAY
     Route: 048
     Dates: start: 20120706

REACTIONS (1)
  - INTERSTITIAL LUNG DISEASE [None]
